FAERS Safety Report 6398404-3 (Version None)
Quarter: 2009Q4

REPORT INFORMATION
  Report Type: 
  Country: None (occurrence: None)
  Receive Date: 20091013
  Receipt Date: 20091005
  Transmission Date: 20100525
  Serious: Yes (Death, Hospitalization, Other)
  Sender: FDA-Public Use
  Company Number: US-WYE-H03992608

PATIENT
  Sex: Female

DRUGS (3)
  1. PREMARIN [Suspect]
  2. ESTRACE [Suspect]
  3. PROVERA [Suspect]

REACTIONS (3)
  - BREAST CANCER [None]
  - GALLBLADDER DISORDER [None]
  - LUNG CANCER METASTATIC [None]
